FAERS Safety Report 5469983-5 (Version None)
Quarter: 2007Q3

REPORT INFORMATION
  Report Type: 
  Country: None (occurrence: None)
  Receive Date: 20070927
  Receipt Date: 20070917
  Transmission Date: 20080115
  Serious: Yes (Hospitalization)
  Sender: FDA-Public Use
  Company Number: US-PFIZER INC-2007061487

PATIENT
  Sex: Female

DRUGS (7)
  1. ATORVASTATIN CALCIUM [Suspect]
     Indication: CORONARY ARTERY DISEASE
     Dosage: DAILY DOSE:20MG
     Route: 048
     Dates: start: 20041102, end: 20041129
  2. ATORVASTATIN CALCIUM [Suspect]
     Dosage: DAILY DOSE:20MG
     Route: 048
  3. PLAVIX [Concomitant]
     Route: 048
     Dates: start: 20040401, end: 20050921
  4. TOPROL-XL [Concomitant]
     Route: 048
  5. NORVASC [Concomitant]
     Route: 048
  6. METFORMIN [Concomitant]
     Route: 048
     Dates: start: 19990101
  7. GLUCOTROL [Concomitant]
     Route: 048
     Dates: start: 19990101

REACTIONS (6)
  - CHEST DISCOMFORT [None]
  - COUGH [None]
  - DYSPNOEA [None]
  - FACIAL PARESIS [None]
  - HYPOAESTHESIA [None]
  - VISION BLURRED [None]
